FAERS Safety Report 4517306-8 (Version None)
Quarter: 2004Q4

REPORT INFORMATION
  Report Type: 
  Country: None (occurrence: None)
  Receive Date: 20041005
  Receipt Date: 20040802
  Transmission Date: 20050328
  Serious: No
  Sender: FDA-Public Use
  Company Number: SU-2004-002561

PATIENT
  Sex: Female

DRUGS (1)
  1. BENICAR HCT [Suspect]
     Indication: HYPERTENSION
     Dosage: 20.125 MG QD PO
     Route: 048
     Dates: start: 20010101, end: 20040701

REACTIONS (7)
  - ANOREXIA [None]
  - FATIGUE [None]
  - LETHARGY [None]
  - MALAISE [None]
  - PAIN [None]
  - PYREXIA [None]
  - WEIGHT DECREASED [None]
